FAERS Safety Report 5291879-2 (Version None)
Quarter: 2007Q2

REPORT INFORMATION
  Report Type: 
  Country: None (occurrence: None)
  Receive Date: 20070406
  Receipt Date: 20070406
  Transmission Date: 20071010
  Serious: No
  Sender: FDA-Public Use
  Company Number: None

PATIENT
  Sex: Female
  Weight: 70.3075 kg

DRUGS (1)
  1. DEPAKOTE [Suspect]
     Indication: MOOD ALTERED
     Dosage: 500MG QAM PO 1000MG QBEDTIME PO
     Route: 048
     Dates: start: 20061219, end: 20070103

REACTIONS (3)
  - AMMONIA INCREASED [None]
  - LETHARGY [None]
  - SEDATION [None]
